FAERS Safety Report 9539589 (Version 2)
Quarter: 2013Q3

REPORT INFORMATION
  Report Type: Spontaneous
  Country: JP (occurrence: JP)
  Receive Date: 20130920
  Receipt Date: 20130920
  Transmission Date: 20140515
  Serious: Yes (Disabling, Other)
  Sender: FDA-Public Use
  Company Number: JP-ASTRAZENECA-2013SE68830

PATIENT
  Age: 66 Year
  Sex: Female

DRUGS (1)
  1. XYLOCAINE POLYAMP [Suspect]
     Dosage: DOSE UNKNOWN
     Route: 065
     Dates: start: 201112, end: 201112

REACTIONS (3)
  - Mental impairment [Unknown]
  - Hypoxic-ischaemic encephalopathy [Unknown]
  - Anaphylactic shock [Unknown]
